APPROVED DRUG PRODUCT: NORETHINDRONE ACETATE
Active Ingredient: NORETHINDRONE ACETATE
Strength: 5MG
Dosage Form/Route: TABLET;ORAL
Application: A204236 | Product #001
Applicant: AUROBINDO PHARMA LTD
Approved: Jan 8, 2016 | RLD: No | RS: No | Type: DISCN